FAERS Safety Report 8295689-3 (Version None)
Quarter: 2012Q2

REPORT INFORMATION
  Report Type: 
  Country: None (occurrence: None)
  Receive Date: 20120416
  Receipt Date: 20120416
  Transmission Date: 20120825
  Serious: Yes (Other)
  Sender: FDA-Public Use
  Company Number: None

PATIENT
  Sex: Male

DRUGS (7)
  1. AMLODIPINE [Concomitant]
  2. CITALOPRAM [Concomitant]
  3. PRILOSEC [Concomitant]
  4. MICARDIS [Suspect]
  5. ACTHAR [Suspect]
     Indication: NEPHROTIC SYNDROME
     Dosage: 80UN BIW SQ
     Route: 058
     Dates: start: 20120301
  6. RENVELA [Suspect]
  7. SIMVASTATIN [Concomitant]

REACTIONS (2)
  - MUSCLE SPASMS [None]
  - DYSARTHRIA [None]
